FAERS Safety Report 19806290 (Version 1)
Quarter: 2021Q3

REPORT INFORMATION
  Report Type: Spontaneous
  Country: US (occurrence: US)
  Receive Date: 20210909
  Receipt Date: 20210909
  Transmission Date: 20211014
  Serious: Yes (Life-Threatening)
  Sender: FDA-Public Use
  Company Number: US-ROCHE-2905075

PATIENT
  Age: 73 Year
  Sex: Female
  Weight: 70 kg

DRUGS (1)
  1. ACTEMRA [Suspect]
     Active Substance: TOCILIZUMAB
     Indication: COVID-19
     Route: 040
     Dates: start: 20210819, end: 20210819

REACTIONS (4)
  - Stenotrophomonas sepsis [Unknown]
  - Off label use [Unknown]
  - Fungal test positive [Unknown]
  - Stenotrophomonas test positive [Unknown]

NARRATIVE: CASE EVENT DATE: 20210820
